FAERS Safety Report 9114791 (Version 1)
Quarter: 2013Q1

REPORT INFORMATION
  Report Type: Spontaneous
  Country: BR (occurrence: BR)
  Receive Date: 20130208
  Receipt Date: 20130208
  Transmission Date: 20140127
  Serious: Yes (Other)
  Sender: FDA-Public Use
  Company Number: BR-ASTRAZENECA-2013SE07317

PATIENT
  Age: 73 Year
  Sex: Female
  Weight: 95 kg

DRUGS (7)
  1. ATACAND HCT [Suspect]
     Indication: HYPERTENSION
     Dosage: 16/12.5 MG TWO TIMES A DAY
     Route: 048
     Dates: start: 20120510, end: 201212
  2. ATACAND COMB [Suspect]
     Indication: HYPERTENSION
     Dosage: 16/2.5 MG TWO TIMES A DAY
     Route: 048
     Dates: start: 201212
  3. GLIFAGE [Concomitant]
     Indication: DIABETES MELLITUS
     Route: 048
     Dates: start: 2010
  4. ATENSINA [Concomitant]
     Route: 048
     Dates: start: 2010
  5. LIPLESS [Concomitant]
     Route: 048
     Dates: start: 2010
  6. LEVOID [Concomitant]
     Indication: HYPOTHYROIDISM
     Route: 048
     Dates: start: 2010
  7. TENADREN [Concomitant]
     Indication: HYPERTENSION
     Route: 048
     Dates: start: 201210

REACTIONS (6)
  - Blood pressure increased [Recovered/Resolved]
  - Fall [Recovered/Resolved]
  - Tendonitis [Recovering/Resolving]
  - Headache [Recovered/Resolved]
  - Off label use [Not Recovered/Not Resolved]
  - Drug ineffective [Unknown]
